FAERS Safety Report 11199613 (Version 1)
Quarter: 2015Q2

REPORT INFORMATION
  Report Type: Spontaneous
  Country: US (occurrence: None)
  Receive Date: 20150616
  Receipt Date: 20150616
  Transmission Date: 20150821
  Serious: Yes (Other)
  Sender: FDA-Public Use
  Company Number: None

PATIENT
  Age: 37 Year
  Sex: Female
  Weight: 90.72 kg

DRUGS (23)
  1. LEVOFLOXACIN 500MG AUROBINDO [Suspect]
     Active Substance: LEVOFLOXACIN
     Indication: BRONCHITIS
     Route: 048
     Dates: start: 20150507, end: 20150512
  2. PROAIR HFA [Concomitant]
     Active Substance: ALBUTEROL SULFATE
  3. MULTIVITAMIN [Concomitant]
     Active Substance: VITAMINS
  4. VITAMIN C [Concomitant]
     Active Substance: ASCORBIC ACID
  5. VITAMIN B COMPLEX [Concomitant]
     Active Substance: CYANOCOBALAMIN\DEXPANTHENOL\NIACINAMIDE\PYRIDOXINE HYDROCHLORIDE\RIBOFLAVIN 5^-PHOSPHATE SODIUM\THIAMINE HYDROCHLORIDE\VITAMIN B COMPLEX
  6. CLONAZEPAM. [Concomitant]
     Active Substance: CLONAZEPAM
  7. DOXYCYCLINE. [Concomitant]
     Active Substance: DOXYCYCLINE
  8. 5-MTHF (METHYLTETRAHYDROFOLATE) [Concomitant]
  9. MAGNESIUM OIL [Concomitant]
  10. MELATONIN [Concomitant]
     Active Substance: MELATONIN
  11. RESTASIS [Concomitant]
     Active Substance: CYCLOSPORINE
  12. VITAMIN B12 [Concomitant]
     Active Substance: CYANOCOBALAMIN
  13. PROBIOTIC [Concomitant]
     Active Substance: PROBIOTICS NOS
  14. LEVOFLOXACIN 500MG AUROBINDO [Suspect]
     Active Substance: LEVOFLOXACIN
     Indication: UPPER RESPIRATORY TRACT INFECTION
     Route: 048
     Dates: start: 20150507, end: 20150512
  15. FISH OIL [Concomitant]
     Active Substance: FISH OIL
  16. L-GLUTATHIONE [Concomitant]
  17. SYNTHROID [Concomitant]
     Active Substance: LEVOTHYROXINE SODIUM
  18. CALCIUM+MAGNESIUM [Concomitant]
  19. SPIRONOLACTONE. [Concomitant]
     Active Substance: SPIRONOLACTONE
  20. METFORMIN [Concomitant]
     Active Substance: METFORMIN HYDROCHLORIDE
  21. FLONASE [Concomitant]
     Active Substance: FLUTICASONE PROPIONATE
  22. VITAMIN D [Concomitant]
     Active Substance: CHOLECALCIFEROL
  23. CHROMIUM [Concomitant]
     Active Substance: CHROMIC CHLORIDE\CHROMIUM

REACTIONS (10)
  - Myalgia [None]
  - Headache [None]
  - Insomnia [None]
  - Arthropathy [None]
  - Visual impairment [None]
  - Asthenia [None]
  - Balance disorder [None]
  - Arthralgia [None]
  - Pain [None]
  - Muscle spasms [None]

NARRATIVE: CASE EVENT DATE: 20150512
